FAERS Safety Report 5466734-5 (Version None)
Quarter: 2007Q3

REPORT INFORMATION
  Report Type: 
  Country: None (occurrence: None)
  Receive Date: 20070924
  Receipt Date: 20070924
  Transmission Date: 20080115
  Serious: No
  Sender: FDA-Public Use
  Company Number: None

PATIENT
  Age: 18 Year
  Sex: Female
  Weight: 77.1115 kg

DRUGS (2)
  1. QUETIAPINE FUMARATE [Suspect]
     Indication: PSYCHOTIC DISORDER
     Dosage: 600MG PO
     Route: 048
  2. DEPO-PROVERA [Concomitant]

REACTIONS (2)
  - BLOOD PROLACTIN INCREASED [None]
  - BREAST DISCHARGE [None]
